FAERS Safety Report 7382515-X (Version None)
Quarter: 2011Q1

REPORT INFORMATION
  Report Type: 
  Country: None (occurrence: None)
  Receive Date: 20110329
  Receipt Date: 20110321
  Transmission Date: 20110831
  Serious: Yes (Death, Hospitalization, Other)
  Sender: FDA-Public Use
  Company Number: US-BAYER-2011-013179

PATIENT
  Sex: Male

DRUGS (5)
  1. NEXAVAR [Suspect]
     Indication: RENAL CANCER
     Dosage: 400 MG, BID
     Route: 048
     Dates: start: 20110125, end: 20110222
  2. NEXAVAR [Suspect]
     Dosage: 200 MG, BID
     Route: 048
     Dates: start: 20110214
  3. AVASTIN [Concomitant]
     Dosage: UNK UNK, Q2WK
     Route: 042
  4. NEXAVAR [Suspect]
     Dosage: 400 MG, BID
     Route: 048
  5. NEXAVAR [Suspect]
     Dosage: 400 MG, QD
     Dates: start: 20110119

REACTIONS (7)
  - BLOOD PRESSURE INCREASED [None]
  - EPISTAXIS [None]
  - HALLUCINATION [None]
  - ADVERSE DRUG REACTION [None]
  - DEATH [None]
  - PAIN [None]
  - HOSPITALISATION [None]
